FAERS Safety Report 4824639-4 (Version None)
Quarter: 2005Q4

REPORT INFORMATION
  Report Type: 
  Country: None (occurrence: None)
  Receive Date: 20051017
  Receipt Date: 20050817
  Transmission Date: 20060501
  Serious: No
  Sender: FDA-Public Use
  Company Number: 2005US001176

PATIENT
  Sex: Male

DRUGS (1)
  1. MYCAMINE [Suspect]

REACTIONS (2)
  - PIGMENTATION DISORDER [None]
  - SKIN HYPERPIGMENTATION [None]
